FAERS Safety Report 9529526 (Version 3)
Quarter: 2013Q4

REPORT INFORMATION
  Report Type: Spontaneous
  Country: US (occurrence: US)
  Receive Date: 20130917
  Receipt Date: 20131114
  Transmission Date: 20140711
  Serious: Yes (Hospitalization)
  Sender: FDA-Public Use
  Company Number: US-FRI-1000045485

PATIENT
  Age: 72 Year
  Sex: Female
  Weight: 55 kg

DRUGS (9)
  1. NAMENDA [Suspect]
     Indication: MEMORY IMPAIRMENT
     Dosage: 5 MG
     Route: 048
     Dates: start: 20130509, end: 20130515
  2. NAMENDA [Suspect]
     Indication: DEMENTIA ALZHEIMER^S TYPE
     Dosage: 10 MG
     Route: 048
     Dates: start: 20130516, end: 20130522
  3. NAMENDA [Suspect]
     Dosage: 5 MG IN AM; 10 MG IN PM
     Route: 048
     Dates: start: 20130523, end: 201305
  4. NAMENDA [Suspect]
     Dosage: 20 MG
     Route: 048
     Dates: start: 201305
  5. IMIPRAMINE [Suspect]
     Dates: end: 201305
  6. CITALOPRAM [Concomitant]
     Dosage: 40 MG
  7. CITALOPRAM [Concomitant]
     Dosage: 20 MG
  8. RITALIN [Concomitant]
     Indication: NARCOLEPSY
  9. PAXIL [Concomitant]
     Indication: ANXIETY

REACTIONS (4)
  - Cataplexy [Recovered/Resolved]
  - Confusional state [Unknown]
  - Constipation [Unknown]
  - Agitation [Unknown]
